FAERS Safety Report 8790241 (Version 1)
Quarter: 2012Q4

REPORT INFORMATION
  Report Type: 
  Country: US (occurrence: US)
  Receive Date: 20120914
  Receipt Date: 20120914
  Transmission Date: 20130627
  Serious: Yes (Hospitalization, Other)
  Sender: FDA-Public Use
  Company Number: US-ELI_LILLY_AND_COMPANY-US201209002430

PATIENT
  Age: 55 Year
  Sex: Female

DRUGS (14)
  1. PROZAC [Suspect]
     Indication: DEPRESSION
     Dosage: 20 mg, UNK
     Dates: start: 1992
  2. CYMBALTA [Suspect]
     Indication: DEPRESSION
     Dosage: 30 mg, bid
  3. FLUOXETINE [Concomitant]
     Dosage: 1 DF, UNK
  4. FLUOXETINE [Concomitant]
     Dosage: 90 mg, UNK
  5. ALPRAZOLAM [Concomitant]
     Indication: ANXIETY
  6. LOSARTAN [Concomitant]
  7. CRESTOR [Concomitant]
  8. ECOTRIN [Concomitant]
     Dosage: 81 mg, UNK
  9. METOPROLOL [Concomitant]
  10. OMEPRAZOLE [Concomitant]
     Dosage: 20 mg, UNK
  11. AUGMENTIN                               /SCH/ [Concomitant]
  12. CALCIUM WITH VITAMIN D             /00944201/ [Concomitant]
  13. VITAMIN C [Concomitant]
  14. MULTIVITAMIN [Concomitant]

REACTIONS (22)
  - Cardiac disorder [Unknown]
  - Suicidal ideation [Recovered/Resolved]
  - Traumatic arthropathy [Unknown]
  - Nerve compression [Unknown]
  - Asthenia [Unknown]
  - Road traffic accident [Unknown]
  - Road traffic accident [Unknown]
  - Chest pain [Unknown]
  - Immune system disorder [Unknown]
  - Carpal tunnel syndrome [Unknown]
  - Headache [Unknown]
  - Blood pressure increased [Unknown]
  - Tremor [Unknown]
  - Periarthritis [Unknown]
  - Oedema peripheral [Unknown]
  - Pain in extremity [Unknown]
  - Thinking abnormal [Unknown]
  - Feeling abnormal [Unknown]
  - Bronchitis [Unknown]
  - Ear infection [Unknown]
  - Memory impairment [Unknown]
  - Malaise [Unknown]
